FAERS Safety Report 16859057 (Version 1)
Quarter: 2019Q3

REPORT INFORMATION
  Report Type: Spontaneous
  Country: US (occurrence: US)
  Receive Date: 20190805
  Receipt Date: 20190805
  Transmission Date: 20191005
  Serious: No
  Sender: FDA-Public Use
  Company Number: None

PATIENT
  Age: 29 Year
  Sex: Male

DRUGS (1)
  1. XELJANZ XR [Suspect]
     Active Substance: TOFACITINIB CITRATE
     Indication: RHEUMATOID ARTHRITIS
     Route: 048
     Dates: start: 20190623

REACTIONS (12)
  - Oropharyngeal pain [None]
  - Headache [None]
  - Pain of skin [None]
  - Dyspnoea [None]
  - Night sweats [None]
  - Influenza like illness [None]
  - Malaise [None]
  - Change of bowel habit [None]
  - Dry mouth [None]
  - Pain [None]
  - Sleep disorder [None]
  - Fatigue [None]

NARRATIVE: CASE EVENT DATE: 20190623
